FAERS Safety Report 19029121 (Version 6)
Quarter: 2021Q3

REPORT INFORMATION
  Report Type: Report from Study
  Country: DE (occurrence: DE)
  Receive Date: 20210318
  Receipt Date: 20210708
  Transmission Date: 20211014
  Serious: Yes (Hospitalization)
  Sender: FDA-Public Use
  Company Number: DE-B.I. PHARMACEUTICALS,INC./RIDGEFIELD-2021-BI-089986

PATIENT
  Age: 75 Year
  Sex: Female
  Weight: 50.1 kg

DRUGS (9)
  1. PROPRANOLOL [Concomitant]
     Active Substance: PROPRANOLOL HYDROCHLORIDE
     Indication: HYPERTENSION
     Route: 048
     Dates: start: 20201222
  2. ALLOPURINOL. [Concomitant]
     Active Substance: ALLOPURINOL
     Indication: PROPHYLAXIS
     Route: 048
     Dates: start: 20200115
  3. NIVOLUMAB [Suspect]
     Active Substance: NIVOLUMAB
     Indication: NON-SMALL CELL LUNG CANCER
     Route: 042
     Dates: start: 20200305, end: 20210325
  4. DRONABINOL. [Concomitant]
     Active Substance: DRONABINOL
     Indication: WEIGHT DECREASED
     Dosage: 15?21 DROPS/D
     Route: 048
     Dates: start: 20210129
  5. ALLOPURINOL. [Concomitant]
     Active Substance: ALLOPURINOL
     Indication: HYPERURICAEMIA
  6. FOLVERLAN [Concomitant]
     Active Substance: FOLIC ACID
     Indication: SUPPORTIVE CARE
     Route: 048
     Dates: start: 20200115
  7. NINTEDANIB [Suspect]
     Active Substance: NINTEDANIB
     Indication: NON-SMALL CELL LUNG CANCER
     Route: 048
     Dates: start: 20200305, end: 20210310
  8. BRIMICA GENUAIR [Concomitant]
     Active Substance: ACLIDINIUM BROMIDE\FORMOTEROL FUMARATE
     Indication: CHRONIC OBSTRUCTIVE PULMONARY DISEASE
     Dosage: UNIT DOSE: 340/12UG X 2P/DAY
     Route: 055
     Dates: start: 20180101
  9. MOVIPREP [Concomitant]
     Active Substance: ASCORBIC ACID\POLYETHYLENE GLYCOL 3350\POTASSIUM CHLORIDE\SODIUM ASCORBATE\SODIUM CHLORIDE\SODIUM SULFATE
     Indication: CONSTIPATION
     Route: 048
     Dates: start: 20210108

REACTIONS (2)
  - Performance status decreased [Recovered/Resolved]
  - Dyspnoea [Recovered/Resolved]

NARRATIVE: CASE EVENT DATE: 20210310
